FAERS Safety Report 17423786 (Version 1)
Quarter: 2020Q1

REPORT INFORMATION
  Report Type: Spontaneous
  Country: GB (occurrence: GB)
  Receive Date: 20200217
  Receipt Date: 20200217
  Transmission Date: 20200409
  Serious: Yes (Other)
  Sender: FDA-Public Use
  Company Number: GB-TEVA-2020-GB-1185776

PATIENT
  Age: 76 Year
  Sex: Female
  Weight: 63 kg

DRUGS (12)
  1. ATORVASTATIN [Concomitant]
     Active Substance: ATORVASTATIN
     Dosage: 1 DOSAGE FORM
     Dates: start: 20190129
  2. RISEDRONATE SODIUM. [Suspect]
     Active Substance: RISEDRONATE SODIUM
     Dosage: 35MG
     Dates: start: 20191231
  3. ACETYLSALICYLIC ACID [Concomitant]
     Active Substance: ASPIRIN
     Dosage: 1 DOSAGE FORM
     Dates: start: 20190129
  4. MONTELUKAST [Concomitant]
     Active Substance: MONTELUKAST SODIUM
     Dosage: 1 DOSAGE FORMS DAILY; AT NIGHT
     Dates: start: 20190129
  5. OMEPRAZOLE. [Concomitant]
     Active Substance: OMEPRAZOLE
     Dosage: 1 DOSAGE FORM
     Dates: start: 20190129
  6. CALCI-D [Concomitant]
     Active Substance: CALCIUM CARBONATE\CHOLECALCIFEROL
     Dosage: 1 DOSAGE FORM
     Dates: start: 20190523
  7. ALENDRONIC ACID [Concomitant]
     Active Substance: ALENDRONIC ACID
     Dosage: 1 DOSAGE FORM
     Dates: start: 20191010, end: 20191231
  8. PREDNISOLONE. [Concomitant]
     Active Substance: PREDNISOLONE
     Dosage: 1 DOSAGE FORM
     Dates: start: 20190129
  9. CARBOCISTEINE [Concomitant]
     Active Substance: CARBOCYSTEINE
     Dosage: 4 DOSAGE FORMS
     Dates: start: 20190129
  10. VENTOLIN [Concomitant]
     Active Substance: ALBUTEROL SULFATE
     Dosage: 2 DOSAGE FORMS
     Route: 055
     Dates: start: 20190129
  11. SYMBICORT [Concomitant]
     Active Substance: BUDESONIDE\FORMOTEROL FUMARATE DIHYDRATE
     Dosage: 4 DOSAGE FORMS
     Route: 055
     Dates: start: 20190129
  12. CO-AMOXICLAV [Concomitant]
     Active Substance: AMOXICILLIN\CLAVULANATE POTASSIUM
     Dosage: 3 DOSAGE FORMS
     Dates: start: 20190129

REACTIONS (2)
  - Mouth swelling [Recovered/Resolved]
  - Swollen tongue [Recovered/Resolved]
